FAERS Safety Report 5679393-3 (Version None)
Quarter: 2008Q1

REPORT INFORMATION
  Report Type: 
  Country: None (occurrence: None)
  Receive Date: 20080325
  Receipt Date: 20080317
  Transmission Date: 20080703
  Serious: Yes (Hospitalization, Other)
  Sender: FDA-Public Use
  Company Number: US-ELI_LILLY_AND_COMPANY-US200803003997

PATIENT
  Sex: Male

DRUGS (8)
  1. HUMALOG MIX 75/25 [Suspect]
     Dosage: UNK, UNK
     Dates: start: 20080313
  2. HUMALOG [Suspect]
     Dosage: 7 U, UNK
  3. HUMALOG [Suspect]
     Dosage: 7 U, AT NOON
  4. HUMALOG [Suspect]
     Dosage: 3 U, UNK
  5. HUMULIN N [Suspect]
     Dosage: 7 U, EACH MORNING
  6. HUMULIN N [Suspect]
     Dosage: 2 U, EACH EVENING
  7. ASPIRIN [Concomitant]
  8. COUMADIN [Concomitant]

REACTIONS (6)
  - COUGH [None]
  - HOSPITALISATION [None]
  - HYPOGLYCAEMIA [None]
  - LOSS OF CONSCIOUSNESS [None]
  - MYOCARDIAL INFARCTION [None]
  - WRONG DRUG ADMINISTERED [None]
